FAERS Safety Report 16050106 (Version 1)
Quarter: 2019Q1

REPORT INFORMATION
  Report Type: Report from Study
  Country: US (occurrence: US)
  Receive Date: 20190308
  Receipt Date: 20190308
  Transmission Date: 20190418
  Serious: Yes (Hospitalization, Other)
  Sender: FDA-Public Use
  Company Number: US-ROCHE-2200830

PATIENT
  Age: 69 Year
  Sex: Female
  Weight: 55.7 kg

DRUGS (4)
  1. IPILIMUMAB [Suspect]
     Active Substance: IPILIMUMAB
     Indication: MALIGNANT MELANOMA STAGE IV
     Dosage: EVERY 3 WEEKS X 4 DOSES (INDUCTION), THEN EVERY 3 MONTHS (MAINTENANCE) AS PER PROTOCOL.?THE LAST DOS
     Route: 042
     Dates: start: 20111024
  2. BEVACIZUMAB. [Suspect]
     Active Substance: BEVACIZUMAB
     Indication: MALIGNANT MELANOMA STAGE IV
     Dosage: THE LAST DOSE OF BEVACIZUMAB ON 29/DEC/2011.
     Route: 042
     Dates: start: 20111024
  3. ATIVAN [Concomitant]
     Active Substance: LORAZEPAM
     Route: 065
     Dates: start: 20110926
  4. PRILOSEC [Concomitant]
     Active Substance: OMEPRAZOLE MAGNESIUM
     Route: 065
     Dates: start: 20111031

REACTIONS (4)
  - Lower gastrointestinal haemorrhage [Unknown]
  - Tachycardia [Unknown]
  - Haemorrhage [Recovered/Resolved]
  - Dyspnoea exertional [Unknown]

NARRATIVE: CASE EVENT DATE: 20111231
